FAERS Safety Report 22977918 (Version 2)
Quarter: 2023Q4

REPORT INFORMATION
  Report Type: Report from Study
  Country: PT (occurrence: PT)
  Receive Date: 20230925
  Receipt Date: 20231108
  Transmission Date: 20240109
  Serious: Yes (Hospitalization)
  Sender: FDA-Public Use
  Company Number: PT-Merck Healthcare KGaA-2023475533

PATIENT
  Age: 55 Year
  Sex: Female

DRUGS (1)
  1. MAVENCLAD [Suspect]
     Active Substance: CLADRIBINE
     Indication: Multiple sclerosis
     Dosage: CYCLE ONE THERAPY
     Route: 048
     Dates: start: 20220725

REACTIONS (4)
  - Loss of consciousness [Unknown]
  - Gait disturbance [Unknown]
  - Fall [Recovering/Resolving]
  - Limb fracture [Unknown]

NARRATIVE: CASE EVENT DATE: 20230908
